FAERS Safety Report 5211947-0 (Version None)
Quarter: 2007Q1

REPORT INFORMATION
  Report Type: 
  Country: None (occurrence: None)
  Receive Date: 20070118
  Receipt Date: 20070108
  Transmission Date: 20070707
  Serious: Yes (Death)
  Sender: FDA-Public Use
  Company Number: LB-AVENTIS-200710140EU

PATIENT
  Age: 76 Year
  Sex: Female

DRUGS (4)
  1. LOVENOX [Suspect]
     Indication: THROMBOSIS PROPHYLAXIS
     Route: 058
     Dates: start: 20070105, end: 20070108
  2. TAVANIC [Concomitant]
     Indication: PNEUMONIA
     Route: 042
     Dates: start: 20070105, end: 20070108
  3. ZANTAC [Concomitant]
     Indication: PROPHYLAXIS
     Route: 042
     Dates: start: 20070105, end: 20070108
  4. ACTRAPID INSULIN NOVO [Concomitant]
     Indication: DIABETES MELLITUS
     Route: 058
     Dates: start: 20070105, end: 20070108

REACTIONS (4)
  - CARDIAC ARREST [None]
  - GENERAL PHYSICAL HEALTH DETERIORATION [None]
  - PNEUMONIA [None]
  - RESPIRATORY ARREST [None]
